FAERS Safety Report 8819000 (Version 1)
Quarter: 2012Q4

REPORT INFORMATION
  Report Type: 
  Country: IT (occurrence: IT)
  Receive Date: 20121001
  Receipt Date: 20121001
  Transmission Date: 20130627
  Serious: Yes (Other)
  Sender: FDA-Public Use
  Company Number: IT-JNJFOC-20120911476

PATIENT
  Age: 55 Year
  Sex: Male

DRUGS (5)
  1. REMICADE [Suspect]
     Indication: ARTHRITIS ENTEROPATHIC
     Dosage: 400 mg cyclical
     Route: 042
     Dates: start: 20101214, end: 20120611
  2. PARACETAMOL [Concomitant]
     Route: 065
  3. PANTORC [Concomitant]
     Route: 065
  4. PRISMA [Concomitant]
     Route: 065
  5. TOTALIP [Concomitant]
     Route: 065

REACTIONS (4)
  - Laryngospasm [Recovered/Resolved]
  - Cough [Recovered/Resolved]
  - Erythema [Recovered/Resolved]
  - Infusion related reaction [Recovered/Resolved]
